FAERS Safety Report 19676145 (Version 1)
Quarter: 2021Q3

REPORT INFORMATION
  Report Type: Spontaneous
  Country: AT (occurrence: AT)
  Receive Date: 20210809
  Receipt Date: 20210809
  Transmission Date: 20211014
  Serious: Yes (Other)
  Sender: FDA-Public Use
  Company Number: AT-TEVA-2021-AT-1939811

PATIENT
  Age: 60 Year
  Sex: Male

DRUGS (1)
  1. DOXYBENE 100 MG ? LOSBARE TABLETTEN [Suspect]
     Active Substance: DOXYCYCLINE
     Dosage: ACCORDING TO SPECIALIST INFORMATION:DISSOLVABLE
     Dates: start: 20210611, end: 20210618

REACTIONS (3)
  - Pruritus [Unknown]
  - Rash [Unknown]
  - Type IV hypersensitivity reaction [Unknown]

NARRATIVE: CASE EVENT DATE: 20210618
